FAERS Safety Report 24725712 (Version 1)
Quarter: 2024Q4

REPORT INFORMATION
  Report Type: Spontaneous
  Country: JP (occurrence: JP)
  Receive Date: 20241212
  Receipt Date: 20241212
  Transmission Date: 20250115
  Serious: Yes (Death, Other)
  Sender: ASTELLAS
  Company Number: JP-ASTELLAS-2024-AER-009589

PATIENT
  Age: 42 Year
  Sex: Male
  Weight: 85 kg

DRUGS (5)
  1. VYLOY [Suspect]
     Active Substance: ZOLBETUXIMAB-CLZB
     Indication: Gastric cancer
     Route: 042
     Dates: start: 20240926, end: 20240926
  2. OPDIVO [Concomitant]
     Active Substance: NIVOLUMAB
     Indication: Gastric cancer
     Route: 042
     Dates: start: 20240912, end: 20240912
  3. FLUOROURACIL [Concomitant]
     Active Substance: FLUOROURACIL
     Indication: Gastric cancer
     Route: 042
     Dates: start: 20240912, end: 20240927
  4. LEVOLEUCOVORIN CALCIUM [Concomitant]
     Active Substance: LEVOLEUCOVORIN CALCIUM
     Indication: Gastric cancer
     Route: 042
     Dates: start: 20240912, end: 20240926
  5. OXALIPLATIN [Concomitant]
     Active Substance: OXALIPLATIN
     Indication: Gastric cancer
     Route: 042
     Dates: start: 20240912, end: 20240926

REACTIONS (3)
  - Respiratory failure [Fatal]
  - Malignant pleural effusion [Fatal]
  - Ascites [Fatal]

NARRATIVE: CASE EVENT DATE: 20240928
